FAERS Safety Report 6654391-1 (Version None)
Quarter: 2010Q1

REPORT INFORMATION
  Report Type: 
  Country: None (occurrence: None)
  Receive Date: 20100326
  Receipt Date: 20100316
  Transmission Date: 20100710
  Serious: Yes (Other)
  Sender: FDA-Public Use
  Company Number: JP-PFIZER INC-2009306636

PATIENT
  Age: 74 Year
  Sex: Male

DRUGS (3)
  1. SEIBULE [Suspect]
     Indication: DIABETES MELLITUS
     Dosage: UNK
     Route: 048
     Dates: start: 20081106, end: 20091202
  2. NOVORAPID [Concomitant]
     Indication: DIABETES MELLITUS
     Dosage: 18 IU, UNK
     Route: 058
     Dates: start: 20070525
  3. INSULIN ASPART [Concomitant]
     Indication: DIABETES MELLITUS
     Dosage: 18 IU, UNK
     Route: 058
     Dates: start: 20070525

REACTIONS (1)
  - HEPATIC FUNCTION ABNORMAL [None]
